FAERS Safety Report 5748148-3 (Version None)
Quarter: 2008Q2

REPORT INFORMATION
  Report Type: 
  Country: None (occurrence: None)
  Receive Date: 20080523
  Receipt Date: 20080310
  Transmission Date: 20081010
  Serious: Yes (Hospitalization)
  Sender: FDA-Public Use
  Company Number: US-BOEHRINGER INGELHEIM GMBH, GERMANY-2007-BP-16542BP

PATIENT
  Sex: Male
  Weight: 79 kg

DRUGS (31)
  1. MIRAPEX [Suspect]
     Indication: PARKINSON'S DISEASE
     Dates: start: 20020529, end: 20050701
  2. MIRAPEX [Suspect]
     Indication: RESTLESS LEGS SYNDROME
  3. SINEQUAN [Concomitant]
  4. PROVIGIL [Concomitant]
  5. MODAFINIL [Concomitant]
  6. XANAX [Concomitant]
  7. GEODON [Concomitant]
  8. DEPAKOTE [Concomitant]
  9. DIVALPROEX SODIUM [Concomitant]
  10. LEXAPRO [Concomitant]
  11. BUSPAR [Concomitant]
  12. LASIX [Concomitant]
  13. LISINOPRIL [Concomitant]
  14. METOPROLOL TARTRATE [Concomitant]
  15. ZOCOR [Concomitant]
  16. DIPHENHYDRAMINE HCL [Concomitant]
  17. AUGMENTIN '125' [Concomitant]
  18. DIAZEPAM [Concomitant]
  19. IBUPROFEN [Concomitant]
  20. PERCOCET [Concomitant]
  21. TYLENOL W/ CODEINE NO. 3 [Concomitant]
  22. CIPROFLOXACIN HCL [Concomitant]
  23. ASPIRIN [Concomitant]
  24. NITROGLYCERIN [Concomitant]
  25. PREVACID [Concomitant]
  26. MULTI-VITAMIN [Concomitant]
  27. VITAMIN E [Concomitant]
  28. NAPROSYN [Concomitant]
  29. POTASSIUM CHLORIDE [Concomitant]
  30. COREG [Concomitant]
  31. REQUIP [Concomitant]

REACTIONS (4)
  - EMOTIONAL DISTRESS [None]
  - OBSESSIVE-COMPULSIVE DISORDER [None]
  - PATHOLOGICAL GAMBLING [None]
  - SUICIDAL IDEATION [None]
